FAERS Safety Report 14345866 (Version 1)
Quarter: 2018Q1

REPORT INFORMATION
  Report Type: Spontaneous
  Country: US (occurrence: US)
  Receive Date: 20180103
  Receipt Date: 20180103
  Transmission Date: 20180509
  Serious: No
  Sender: FDA-Public Use
  Company Number: US-PFIZER INC-2018001509

PATIENT
  Age: 61 Year
  Sex: Female
  Weight: 93 kg

DRUGS (4)
  1. GABAPENTIN. [Suspect]
     Active Substance: GABAPENTIN
     Indication: BACK PAIN
  2. GABAPENTIN. [Suspect]
     Active Substance: GABAPENTIN
     Indication: NEURALGIA
  3. GABAPENTIN. [Suspect]
     Active Substance: GABAPENTIN
     Indication: FIBROMYALGIA
  4. BUPIVACAINE. [Concomitant]
     Active Substance: BUPIVACAINE

REACTIONS (3)
  - Hypersensitivity [Unknown]
  - Pharyngeal oedema [Unknown]
  - Product use in unapproved indication [Unknown]
